FAERS Safety Report 6571702-6 (Version None)
Quarter: 2010Q1

REPORT INFORMATION
  Report Type: 
  Country: None (occurrence: None)
  Receive Date: 20100205
  Receipt Date: 20100128
  Transmission Date: 20100710
  Serious: Yes (Hospitalization, Other)
  Sender: FDA-Public Use
  Company Number: CY-JNJFOC-20100200563

PATIENT
  Age: 14 Year
  Sex: Female
  Weight: 45 kg

DRUGS (2)
  1. RISPERDAL [Suspect]
     Indication: ACUTE PSYCHOSIS
     Route: 048
  2. RISPERDAL [Suspect]
     Route: 048

REACTIONS (5)
  - ACCIDENTAL OVERDOSE [None]
  - BLOOD PRESSURE INADEQUATELY CONTROLLED [None]
  - HYPERHIDROSIS [None]
  - PYREXIA [None]
  - TREMOR [None]
